FAERS Safety Report 7245916-6 (Version None)
Quarter: 2011Q1

REPORT INFORMATION
  Report Type: 
  Country: None (occurrence: None)
  Receive Date: 20110126
  Receipt Date: 20100127
  Transmission Date: 20110831
  Serious: Yes (Other)
  Sender: FDA-Public Use
  Company Number: US-BRISTOL-MYERS SQUIBB COMPANY-14952501

PATIENT
  Sex: Male

DRUGS (2)
  1. POSACONAZOLE [Suspect]
  2. AMPHOTERICIN B [Suspect]

REACTIONS (1)
  - RENAL FAILURE [None]
